FAERS Safety Report 8762580 (Version 1)
Quarter: 2012Q4

REPORT INFORMATION
  Report Type: Report from Study
  Country: DE (occurrence: DE)
  Receive Date: 20120830
  Receipt Date: 20120830
  Transmission Date: 20130627
  Serious: Yes (Death, Other)
  Sender: FDA-Public Use
  Company Number: DE-ROCHE-1108644

PATIENT
  Age: 60 Year
  Sex: Male

DRUGS (2)
  1. COPEGUS [Suspect]
     Indication: HEPATITIS C
     Dates: start: 200203, end: 200401
  2. PEGYLATED INTERFERON ALPHA NOS [Suspect]
     Indication: HEPATITIS C
     Dates: start: 200203, end: 200401

REACTIONS (2)
  - Hepatocellular carcinoma [Fatal]
  - Drug ineffective [Unknown]
